FAERS Safety Report 14709216 (Version 1)
Quarter: 2018Q2

REPORT INFORMATION
  Report Type: Spontaneous
  Country: DE (occurrence: DE)
  Receive Date: 20180403
  Receipt Date: 20180403
  Transmission Date: 20180711
  Serious: Yes (Other)
  Sender: FDA-Public Use
  Company Number: DE-TEVA-2018-DE-874922

PATIENT
  Age: 98 Year
  Sex: Female

DRUGS (2)
  1. LACTULOSE-RATIOPHARM SIRUP [Suspect]
     Active Substance: LACTULOSE
     Indication: CONSTIPATION
     Dosage: ONE TABLESPOON PER DAY
     Route: 048
     Dates: start: 2018, end: 2018
  2. LECICARBON-ZAEPFCHEN [Concomitant]

REACTIONS (3)
  - Anal incontinence [Unknown]
  - Haematochezia [Unknown]
  - Genital haemorrhage [Unknown]

NARRATIVE: CASE EVENT DATE: 2018
